FAERS Safety Report 5921037-7 (Version None)
Quarter: 2008Q4

REPORT INFORMATION
  Report Type: 
  Country: None (occurrence: None)
  Receive Date: 20081016
  Receipt Date: 20081006
  Transmission Date: 20090506
  Serious: Yes (Hospitalization, Other)
  Sender: FDA-Public Use
  Company Number: GB-PFIZER INC-2008081602

PATIENT
  Age: 57 Year
  Sex: Female

DRUGS (6)
  1. EPIRUBICIN HYDROCHLORIDE [Suspect]
     Indication: BREAST CANCER RECURRENT
  2. VINORELBINE [Suspect]
     Indication: BREAST CANCER RECURRENT
  3. CAPECITABINE [Suspect]
     Indication: BREAST CANCER RECURRENT
  4. TRASTUZUMAB [Suspect]
     Indication: BREAST CANCER RECURRENT
     Dosage: FREQ:WEEKLY
     Dates: start: 20030301
  5. GOSERELIN [Concomitant]
  6. ANASTROZOLE [Concomitant]

REACTIONS (2)
  - CARDIAC FAILURE [None]
  - EJECTION FRACTION DECREASED [None]
